FAERS Safety Report 8067440-3 (Version None)
Quarter: 2012Q1

REPORT INFORMATION
  Report Type: 
  Country: None (occurrence: None)
  Receive Date: 20120124
  Receipt Date: 20120118
  Transmission Date: 20120608
  Serious: Yes (Other)
  Sender: FDA-Public Use
  Company Number: GR-PFIZER INC-2012014948

PATIENT
  Age: 75 Year
  Sex: Male

DRUGS (6)
  1. ZOLOFT [Suspect]
     Indication: INSOMNIA
     Dosage: 25 MG, 1X/DAY
  2. PLAVIX [Concomitant]
     Indication: ANTIPLATELET THERAPY
     Dosage: UNK
  3. LORAZEPAM [Suspect]
     Indication: ANXIETY
     Dosage: 0.625 MG, 1X/DAY
     Dates: start: 20110101
  4. ZOLOFT [Suspect]
     Indication: DEPRESSION
     Dosage: 10 MG, 1X/DAY
     Dates: start: 20110901
  5. LORAZEPAM [Suspect]
     Indication: STRESS
     Dosage: 1.25 MG, 1X/DAY
     Dates: start: 20111001
  6. LORAZEPAM [Suspect]
     Dosage: 0.313 MG, 1X/DAY
     Dates: start: 20110101

REACTIONS (10)
  - DIZZINESS [None]
  - DYSKINESIA [None]
  - FEAR [None]
  - ANXIETY [None]
  - DRUG DEPENDENCE [None]
  - HYPOAESTHESIA [None]
  - STRESS [None]
  - VERTIGO [None]
  - HEADACHE [None]
  - PHOBIA [None]
